FAERS Safety Report 4846895-9 (Version None)
Quarter: 2005Q4

REPORT INFORMATION
  Report Type: 
  Country: None (occurrence: None)
  Receive Date: 20051202
  Receipt Date: 20051124
  Transmission Date: 20060501
  Serious: Yes (Hospitalization)
  Sender: FDA-Public Use
  Company Number: 2005157806

PATIENT
  Age: 73 Year
  Sex: Male

DRUGS (6)
  1. CABERGOLINE [Suspect]
     Indication: PARKINSON'S DISEASE
     Dosage: 0.5 MG DAILY ORAL
     Route: 048
     Dates: start: 19980101
  2. MADOPARK (BENSERAZIDE HYDROCHLORIDE, LEVODOPA) [Concomitant]
  3. REMERON [Concomitant]
  4. SINEMET [Concomitant]
  5. LEVODOPA [Concomitant]
  6. ELDEPRYL [Concomitant]

REACTIONS (9)
  - ATRIAL SEPTAL DEFECT [None]
  - COUGH [None]
  - HEART VALVE INSUFFICIENCY [None]
  - OSTEITIS [None]
  - PLEURISY [None]
  - PROSTATE CANCER [None]
  - RIGHT VENTRICULAR FAILURE [None]
  - TRICUSPID VALVE DISEASE [None]
  - TRICUSPID VALVE INCOMPETENCE [None]
